FAERS Safety Report 7904506-X (Version None)
Quarter: 2011Q4

REPORT INFORMATION
  Report Type: 
  Country: None (occurrence: None)
  Receive Date: 20111109
  Receipt Date: 20111028
  Transmission Date: 20120403
  Serious: Yes (Hospitalization, Other)
  Sender: FDA-Public Use
  Company Number: US-BAYER-201041477NA

PATIENT
  Age: 14 Year
  Sex: Female
  Weight: 79.365 kg

DRUGS (11)
  1. YASMIN [Suspect]
     Indication: NAUSEA
  2. YAZ [Suspect]
     Indication: ACNE
     Dosage: UNK
     Dates: start: 20060101, end: 20100101
  3. YAZ [Suspect]
     Indication: MENORRHAGIA
  4. YAZ [Suspect]
     Indication: NAUSEA
  5. ZOFRAN [Concomitant]
     Indication: NAUSEA
     Dosage: UNK
     Dates: start: 20060110
  6. YASMIN [Suspect]
     Indication: ACNE
     Dosage: UNK
     Dates: start: 20060101, end: 20100101
  7. YASMIN [Suspect]
     Indication: DYSMENORRHOEA
  8. LEXAPRO [Concomitant]
  9. YASMIN [Suspect]
     Indication: MENORRHAGIA
  10. YAZ [Suspect]
     Indication: DYSMENORRHOEA
  11. ZOFRAN [Concomitant]
     Indication: VOMITING

REACTIONS (2)
  - GALLBLADDER DISORDER [None]
  - CHOLECYSTITIS CHRONIC [None]
